FAERS Safety Report 17302493 (Version 1)
Quarter: 2020Q1

REPORT INFORMATION
  Report Type: Spontaneous
  Country: US (occurrence: US)
  Receive Date: 20200122
  Receipt Date: 20200122
  Transmission Date: 20200409
  Serious: No
  Sender: FDA-Public Use
  Company Number: US-FRESENIUS KABI-FK202000740

PATIENT
  Age: 15 Year
  Sex: Male

DRUGS (2)
  1. NEBUPENT [Suspect]
     Active Substance: PENTAMIDINE ISETHIONATE
     Indication: PROPHYLAXIS
     Dosage: ABOUT 3 ML
     Route: 055
     Dates: start: 20200115, end: 20200115
  2. VINCRISTINE [Suspect]
     Active Substance: VINCRISTINE
     Indication: LEUKAEMIA
     Route: 065
     Dates: start: 20200115, end: 20200115

REACTIONS (2)
  - Product use issue [Unknown]
  - Paraesthesia [Recovered/Resolved]

NARRATIVE: CASE EVENT DATE: 20200115
